FAERS Safety Report 24120350 (Version 1)
Quarter: 2024Q3

REPORT INFORMATION
  Report Type: Spontaneous
  Country: RU (occurrence: RU)
  Receive Date: 20240722
  Receipt Date: 20240722
  Transmission Date: 20241016
  Serious: Yes (Other)
  Sender: JOHNSON AND JOHNSON
  Company Number: RU-JNJFOC-20240741713

PATIENT
  Age: 10 Year
  Sex: Female

DRUGS (2)
  1. SIRTURO [Suspect]
     Active Substance: BEDAQUILINE FUMARATE
     Indication: Product used for unknown indication
     Route: 048
     Dates: start: 20240426, end: 20240509
  2. DELAMANID [Suspect]
     Active Substance: DELAMANID
     Indication: Product used for unknown indication
     Route: 065
     Dates: start: 20240427, end: 20240509

REACTIONS (1)
  - Electrocardiogram PR prolongation [Recovered/Resolved]

NARRATIVE: CASE EVENT DATE: 20240510
